FAERS Safety Report 5000317-6 (Version None)
Quarter: 2006Q2

REPORT INFORMATION
  Report Type: 
  Country: None (occurrence: None)
  Receive Date: 20060511
  Receipt Date: 20060413
  Transmission Date: 20061013
  Serious: Yes (Death, Hospitalization, Disabling)
  Sender: FDA-Public Use
  Company Number: US-MERCK-0604USA02126

PATIENT
  Age: 72 Year
  Sex: Female
  Weight: 55 kg

DRUGS (1)
  1. VIOXX [Suspect]
     Indication: PAIN
     Route: 048
     Dates: start: 19990101, end: 20030424

REACTIONS (10)
  - ARTERIOSCLEROSIS [None]
  - BRAIN STEM INFARCTION [None]
  - HYPERLIPIDAEMIA [None]
  - HYPERTENSION [None]
  - HYPOTHYROIDISM [None]
  - PANCREATITIS [None]
  - STAPHYLOCOCCAL INFECTION [None]
  - SUBCLAVIAN ARTERY STENOSIS [None]
  - THALAMIC INFARCTION [None]
  - UPPER GASTROINTESTINAL HAEMORRHAGE [None]
